FAERS Safety Report 15554102 (Version 1)
Quarter: 2018Q4

REPORT INFORMATION
  Report Type: Spontaneous
  Country: US (occurrence: US)
  Receive Date: 20181025
  Receipt Date: 20181025
  Transmission Date: 20190205
  Serious: No
  Sender: FDA-Public Use
  Company Number: None

PATIENT
  Age: 49 Year
  Sex: Female
  Weight: 103.5 kg

DRUGS (6)
  1. OXYCODON/APAP [Concomitant]
  2. AMLODIPINE [Concomitant]
     Active Substance: AMLODIPINE BESYLATE
  3. JADENU [Suspect]
     Active Substance: DEFERASIROX
     Indication: NON-HODGKIN^S LYMPHOMA
     Route: 048
     Dates: start: 20181011
  4. LOSARTAN. [Concomitant]
     Active Substance: LOSARTAN
  5. OMEPRAZOLE 40 MG [Concomitant]
     Active Substance: OMEPRAZOLE
  6. JADENU [Suspect]
     Active Substance: DEFERASIROX
     Indication: IRON OVERLOAD
     Route: 048
     Dates: start: 20181011

REACTIONS (1)
  - Nausea [None]

NARRATIVE: CASE EVENT DATE: 20181011
